FAERS Safety Report 5743933-6 (Version None)
Quarter: 2008Q2

REPORT INFORMATION
  Report Type: 
  Country: None (occurrence: None)
  Receive Date: 20080520
  Receipt Date: 20080513
  Transmission Date: 20081010
  Serious: Yes (Other)
  Sender: FDA-Public Use
  Company Number: CA-JNJFOC-20060703121

PATIENT
  Age: 68 Year
  Sex: Male

DRUGS (14)
  1. RISPERDAL [Suspect]
  2. RISPERDAL [Suspect]
  3. RISPERDAL [Suspect]
  4. RISPERDAL [Suspect]
     Indication: SCHIZOPHRENIA
  5. IRON [Concomitant]
  6. NOVAMOXIN [Concomitant]
     Indication: DRUG USE FOR UNKNOWN INDICATION
     Dates: start: 20030613, end: 20030911
  7. TEQUIN [Concomitant]
     Indication: DRUG USE FOR UNKNOWN INDICATION
  8. AMOXICILLIN [Concomitant]
     Indication: PNEUMONIA
  9. AUGMENTIN '125' [Concomitant]
     Indication: DRUG USE FOR UNKNOWN INDICATION
  10. ZITHROMAX [Concomitant]
  11. ZYPREXA [Concomitant]
  12. BIAXIN [Concomitant]
  13. STELAZINE [Concomitant]
  14. CIPRO [Concomitant]

REACTIONS (18)
  - CATARACT [None]
  - CERUMEN IMPACTION [None]
  - CHEST DISCOMFORT [None]
  - INFLUENZA [None]
  - LIMB DISCOMFORT [None]
  - LYMPHOCYTE COUNT DECREASED [None]
  - NASAL MUCOSAL DISORDER [None]
  - OSTEOARTHRITIS [None]
  - PNEUMONIA [None]
  - RED BLOOD CELL COUNT DECREASED [None]
  - RESPIRATORY TRACT INFECTION [None]
  - SINUSITIS [None]
  - SKIN EXFOLIATION [None]
  - SLEEP INERTIA [None]
  - STOMACH DISCOMFORT [None]
  - THERAPEUTIC RESPONSE UNEXPECTED [None]
  - TOOTH INJURY [None]
  - WHITE BLOOD CELL COUNT DECREASED [None]
